FAERS Safety Report 11912145 (Version 1)
Quarter: 2016Q1

REPORT INFORMATION
  Report Type: Report from Study
  Country: US (occurrence: US)
  Receive Date: 20160112
  Receipt Date: 20160112
  Transmission Date: 20160526
  Serious: Yes (Other)
  Sender: FDA-Public Use
  Company Number: US-AMGEN-USASL2016001147

PATIENT
  Age: 56 Year
  Sex: Female

DRUGS (1)
  1. ENBREL [Suspect]
     Active Substance: ETANERCEPT
     Indication: RHEUMATOID ARTHRITIS
     Dosage: UNK
     Route: 065

REACTIONS (7)
  - Hernia [Unknown]
  - Complication associated with device [Unknown]
  - Foot operation [Unknown]
  - Blindness [Unknown]
  - Spinal operation [Unknown]
  - Systemic lupus erythematosus [Unknown]
  - Fall [Unknown]

NARRATIVE: CASE EVENT DATE: 2015
